FAERS Safety Report 6424370-8 (Version None)
Quarter: 2009Q4

REPORT INFORMATION
  Report Type: 
  Country: None (occurrence: None)
  Receive Date: 20091103
  Receipt Date: 20091022
  Transmission Date: 20100525
  Serious: Yes (Hospitalization)
  Sender: FDA-Public Use
  Company Number: US-ELI_LILLY_AND_COMPANY-US200910005612

PATIENT
  Sex: Male
  Weight: 94.331 kg

DRUGS (20)
  1. PEMETREXED [Suspect]
     Indication: NON-SMALL CELL LUNG CANCER STAGE IV
     Dosage: 500 MG/M2, OTHER
     Route: 042
     Dates: start: 20090812
  2. CARBOPLATIN [Suspect]
     Indication: NON-SMALL CELL LUNG CANCER STAGE IV
     Dosage: UNK, OTHER
     Route: 042
     Dates: start: 20090812
  3. BEVACIZUMAB [Suspect]
     Indication: NON-SMALL CELL LUNG CANCER STAGE IV
     Dosage: 15 MG/KG, OTHER
     Route: 042
     Dates: start: 20090812, end: 20091014
  4. PLAVIX [Concomitant]
     Indication: CORONARY ARTERY DISEASE
     Dosage: 75 MG, DAILY (1/D)
     Route: 065
  5. SIMVASTATIN [Concomitant]
     Dosage: 80 MG, DAILY (1/D)
     Route: 065
  6. ADVAIR DISKUS 100/50 [Concomitant]
     Dosage: UNK, UNKNOWN
     Route: 065
  7. LASIX [Concomitant]
     Dosage: UNK, AS NEEDED
     Route: 065
  8. IMDUR [Concomitant]
     Dosage: 30 MG, DAILY (1/D)
     Route: 065
  9. LISINOPRIL [Concomitant]
     Dosage: 20 MG, DAILY (1/D)
     Route: 065
  10. PAXIL [Concomitant]
     Dosage: 20 MG, DAILY (1/D)
     Route: 065
  11. VERAPAMIL [Concomitant]
     Dosage: 240 MG, DAILY (1/D)
     Route: 065
  12. PERCOCET [Concomitant]
     Dosage: UNK, 4/D
     Route: 065
  13. ATORVASTATIN [Concomitant]
     Dosage: UNK, UNKNOWN
     Route: 065
  14. FLUCONAZOLE [Concomitant]
     Dosage: UNK, UNKNOWN
     Route: 065
  15. FOLIC ACID [Concomitant]
     Dosage: UNK, UNKNOWN
     Route: 065
  16. GUAIFENESIN [Concomitant]
     Route: 065
  17. LABETALOL [Concomitant]
     Dosage: UNK, UNKNOWN
     Route: 065
  18. REGLAN [Concomitant]
     Dosage: UNK, UNKNOWN
     Route: 065
  19. METOPROLOL [Concomitant]
     Dosage: UNK, UNKNOWN
     Route: 065
  20. MULTI-VITAMIN [Concomitant]
     Dosage: UNK, UNKNOWN
     Route: 065

REACTIONS (9)
  - ALANINE AMINOTRANSFERASE INCREASED [None]
  - ASPARTATE AMINOTRANSFERASE INCREASED [None]
  - BLOOD ALKALINE PHOSPHATASE INCREASED [None]
  - BLOOD PRESSURE DECREASED [None]
  - GASTROINTESTINAL HAEMORRHAGE [None]
  - HAEMATOCRIT DECREASED [None]
  - HAEMOGLOBIN DECREASED [None]
  - MYOCARDIAL INFARCTION [None]
  - SINUS TACHYCARDIA [None]
